FAERS Safety Report 12242902 (Version 1)
Quarter: 2016Q2

REPORT INFORMATION
  Report Type: Spontaneous
  Country: AU (occurrence: AU)
  Receive Date: 20160406
  Receipt Date: 20160406
  Transmission Date: 20160815
  Serious: Yes (Hospitalization)
  Sender: FDA-Public Use
  Company Number: AU-OTSUKA-2016_007385

PATIENT
  Age: 38 Year
  Sex: Male

DRUGS (1)
  1. ABILIFY MAINTENA [Suspect]
     Active Substance: ARIPIPRAZOLE
     Indication: SCHIZOPHRENIA
     Dosage: 400 MG, QM
     Route: 065

REACTIONS (6)
  - Euphoric mood [Unknown]
  - Hospitalisation [Unknown]
  - Mania [Unknown]
  - Abnormal behaviour [Unknown]
  - Overdose [Unknown]
  - Drug monitoring procedure incorrectly performed [Unknown]
